FAERS Safety Report 22160173 (Version 1)
Quarter: 2023Q1

REPORT INFORMATION
  Report Type: Spontaneous
  Country: JP (occurrence: JP)
  Receive Date: 20230331
  Receipt Date: 20230331
  Transmission Date: 20230417
  Serious: Yes (Hospitalization, Other)
  Sender: FDA-Public Use
  Company Number: JP-GLAXOSMITHKLINE-JP2023JPN046788

PATIENT

DRUGS (5)
  1. LAMICTAL [Suspect]
     Active Substance: LAMOTRIGINE
     Indication: Bipolar disorder
     Dosage: UNK
  2. IMIPRAMINE HYDROCHLORIDE [Concomitant]
     Active Substance: IMIPRAMINE HYDROCHLORIDE
     Indication: Bipolar disorder
     Dosage: UNK
  3. MIRTAZAPINE [Concomitant]
     Active Substance: MIRTAZAPINE
     Indication: Bipolar disorder
     Dosage: UNK
  4. SULPIRIDE [Concomitant]
     Active Substance: SULPIRIDE
     Indication: Bipolar disorder
     Dosage: UNK
  5. CLONAZEPAM [Concomitant]
     Active Substance: CLONAZEPAM
     Indication: Bipolar disorder
     Dosage: UNK

REACTIONS (8)
  - Drug reaction with eosinophilia and systemic symptoms [Unknown]
  - Liver disorder [Unknown]
  - Renal disorder [Unknown]
  - Pyrexia [Unknown]
  - Lymphadenopathy [Unknown]
  - Hepatosplenomegaly [Unknown]
  - Rash [Unknown]
  - Rash papular [Recovering/Resolving]
